FAERS Safety Report 9099583 (Version 2)
Quarter: 2013Q4

REPORT INFORMATION
  Report Type: Spontaneous
  Country: US (occurrence: US)
  Receive Date: 20130214
  Receipt Date: 20131226
  Transmission Date: 20140711
  Serious: No
  Sender: FDA-Public Use
  Company Number: US-PFIZER INC-2013058272

PATIENT
  Age: 49 Year
  Sex: Male
  Weight: 83.45 kg

DRUGS (1)
  1. VIAGRA [Suspect]
     Dosage: 100 MG, AS NEEDED
     Dates: start: 2011

REACTIONS (5)
  - Drug ineffective [Unknown]
  - Malaise [Unknown]
  - Dysgeusia [Unknown]
  - Nausea [Recovered/Resolved]
  - Headache [Recovered/Resolved]
